FAERS Safety Report 25239696 (Version 1)
Quarter: 2025Q2

REPORT INFORMATION
  Report Type: Spontaneous
  Country: CN (occurrence: CN)
  Receive Date: 20250425
  Receipt Date: 20250425
  Transmission Date: 20250717
  Serious: Yes (Other)
  Sender: BAYER HEALTHCARE PHARMACEUTICALS INC.
  Company Number: CN-BAYER-2025A056735

PATIENT
  Age: 40 Year
  Sex: Female
  Weight: 67.2 kg

DRUGS (3)
  1. ULTRAVIST [Suspect]
     Active Substance: IOPROMIDE
     Indication: Computerised tomogram kidney
     Route: 042
     Dates: start: 20250415, end: 20250415
  2. ULTRAVIST [Suspect]
     Active Substance: IOPROMIDE
     Indication: Angiogram peripheral
  3. ULTRAVIST [Suspect]
     Active Substance: IOPROMIDE
     Indication: Hypertension

REACTIONS (6)
  - Contrast media allergy [Recovering/Resolving]
  - Nasal obstruction [Recovering/Resolving]
  - Chest discomfort [Recovering/Resolving]
  - Lip swelling [Recovering/Resolving]
  - Mouth swelling [Recovering/Resolving]
  - Swollen tongue [Recovering/Resolving]

NARRATIVE: CASE EVENT DATE: 20250415
